FAERS Safety Report 4801642-1 (Version None)
Quarter: 2005Q4

REPORT INFORMATION
  Report Type: 
  Country: None (occurrence: None)
  Receive Date: 20051014
  Receipt Date: 20051014
  Transmission Date: 20060501
  Serious: Yes (Hospitalization)
  Sender: FDA-Public Use
  Company Number: None

PATIENT
  Sex: Male
  Weight: 90.7 kg

DRUGS (4)
  1. IRINOTECAN 125 MG/M2 [Suspect]
     Indication: GLIOBLASTOMA MULTIFORME
     Dosage: 260 MG    SEE IMAGE
     Dates: start: 20050630
  2. IRINOTECAN 125 MG/M2 [Suspect]
     Indication: GLIOBLASTOMA MULTIFORME
     Dosage: 260 MG    SEE IMAGE
     Dates: start: 20050714
  3. BEVACIZUMAB 10MG/KG [Suspect]
     Indication: GLIOBLASTOMA MULTIFORME
     Dosage: 948 MG   SEE IMAGE
     Dates: start: 20050630
  4. BEVACIZUMAB 10MG/KG [Suspect]
     Indication: GLIOBLASTOMA MULTIFORME
     Dosage: 948 MG   SEE IMAGE
     Dates: start: 20050714

REACTIONS (1)
  - NO ADVERSE EFFECT [None]
